FAERS Safety Report 6438275-X (Version None)
Quarter: 2009Q4

REPORT INFORMATION
  Report Type: 
  Country: None (occurrence: None)
  Receive Date: 20091112
  Receipt Date: 20091030
  Transmission Date: 20100525
  Serious: Yes (Other)
  Sender: FDA-Public Use
  Company Number: PHHY2009AU47111

PATIENT
  Age: 78 Year
  Sex: Male

DRUGS (5)
  1. TEGRETOL [Suspect]
     Dosage: 200MG MORNING AND NIGHT
  2. TEGRETOL [Suspect]
     Dosage: 400MG MORNING AND NIGHT
  3. AVAPRO [Concomitant]
  4. ASPIRIN [Concomitant]
  5. LIPITOR [Concomitant]

REACTIONS (1)
  - GRAND MAL CONVULSION [None]
